FAERS Safety Report 5797507-1 (Version None)
Quarter: 2008Q2

REPORT INFORMATION
  Report Type: 
  Country: None (occurrence: None)
  Receive Date: 20080630
  Receipt Date: 20080620
  Transmission Date: 20081010
  Serious: Yes (Other)
  Sender: FDA-Public Use
  Company Number: 029526

PATIENT
  Age: 30 Year
  Sex: Female
  Weight: 111.1 kg

DRUGS (6)
  1. PLAN B [Suspect]
     Indication: CONTRACEPTION
     Dosage: 22 TABLET, SINGLE, ORAL
     Route: 048
     Dates: start: 20080527, end: 20080527
  2. SEROQUEL [Concomitant]
  3. KLONOPIN [Concomitant]
  4. GLUCOPHAGE [Concomitant]
  5. BENADRYL (SODIUM CITRATE, MENTHOL, AMMONIUM CHLORIDE) [Concomitant]
  6. VICODIN [Concomitant]

REACTIONS (5)
  - ABDOMINAL PAIN LOWER [None]
  - ABORTION SPONTANEOUS [None]
  - DRUG EXPOSURE DURING PREGNANCY [None]
  - UNINTENDED PREGNANCY [None]
  - VAGINAL HAEMORRHAGE [None]
